FAERS Safety Report 15763546 (Version 1)
Quarter: 2018Q4

REPORT INFORMATION
  Report Type: Spontaneous
  Country: US (occurrence: US)
  Receive Date: 20181227
  Receipt Date: 20181227
  Transmission Date: 20190205
  Serious: No
  Sender: FDA-Public Use
  Company Number: US-DRREDDYS-USA/USA/18/0096373

PATIENT
  Age: 79 Year
  Sex: Female
  Weight: 80.45 kg

DRUGS (2)
  1. RIVASTIGMINE TARTRATE. [Suspect]
     Active Substance: RIVASTIGMINE TARTRATE
     Indication: PRODUCT USED FOR UNKNOWN INDICATION
     Route: 065
     Dates: start: 20171114
  2. RIVASTIGMINE TARTRATE. [Suspect]
     Active Substance: RIVASTIGMINE TARTRATE
     Route: 065

REACTIONS (8)
  - Vomiting [Recovered/Resolved]
  - Dizziness [Recovered/Resolved]
  - Drug effect increased [Unknown]
  - Drug ineffective [Unknown]
  - Nausea [Recovered/Resolved]
  - Product commingling [Unknown]
  - Diarrhoea [Recovered/Resolved]
  - Product complaint [Unknown]
